FAERS Safety Report 19774079 (Version 2)
Quarter: 2025Q3

REPORT INFORMATION
  Report Type: Spontaneous
  Country: EU (occurrence: EU)
  Receive Date: 20210901
  Receipt Date: 20250919
  Transmission Date: 20251020
  Serious: Yes (Other)
  Sender: TEVA
  Company Number: None

PATIENT
  Age: 59 Year
  Sex: Male
  Weight: 85 kg

DRUGS (2)
  1. DICLOFENAC [Suspect]
     Active Substance: DICLOFENAC
     Indication: Spinal pain
     Dosage: DOSAGE TEXT: 100 MG /THE
     Route: 054
     Dates: start: 2000, end: 20210801
  2. GABAPENTIN [Concomitant]
     Active Substance: GABAPENTIN
     Indication: Vertebral foraminal stenosis
     Route: 048
     Dates: start: 2000, end: 2021

REACTIONS (5)
  - Thrombocytopenia [Not Recovered/Not Resolved]
  - Hypertension [Not Recovered/Not Resolved]
  - Mitral valve incompetence [Not Recovered/Not Resolved]
  - Aortic valve incompetence [Not Recovered/Not Resolved]
  - Aortic aneurysm [Not Recovered/Not Resolved]

NARRATIVE: CASE EVENT DATE: 20210601
